FAERS Safety Report 7108821-1 (Version None)
Quarter: 2010Q4

REPORT INFORMATION
  Report Type: 
  Country: None (occurrence: None)
  Receive Date: 20101112
  Receipt Date: 20101105
  Transmission Date: 20110411
  Serious: Yes (Death, Congenital Anomaly)
  Sender: FDA-Public Use
  Company Number: 2010MA004240

PATIENT

DRUGS (11)
  1. FEVERALL [Suspect]
     Indication: SYSTEMIC LUPUS ERYTHEMATOSUS
     Dosage: TRPL
     Route: 064
     Dates: start: 20090309, end: 20090420
  2. ALENDRONIC ACID (ALENDRONIC ACID) [Suspect]
     Indication: SYSTEMIC LUPUS ERYTHEMATOSUS
     Dosage: 70 MG;QD;TRPL
     Route: 064
  3. METHYLPREDNISOLONE [Suspect]
     Dosage: TRPL
     Route: 064
  4. HYDROXYCHLOROQUINE SULFATE [Suspect]
     Indication: SYSTEMIC LUPUS ERYTHEMATOSUS
     Dosage: 200 MG;QD
     Dates: start: 20090318
  5. MUPIROCIN [Suspect]
     Dosage: TRPL
     Route: 064
     Dates: start: 20090320, end: 20090420
  6. CHLORHEXIDINE (CHLORHEXIDINE) [Suspect]
     Dosage: TRPL
     Route: 064
     Dates: start: 20090309, end: 20090420
  7. SENNA (SENNA ALEXANDRINA) [Suspect]
     Dosage: TRPL
     Route: 064
     Dates: start: 20090309, end: 20090420
  8. SIMPLE LINCTUS (SIMPLE LINCTUS) [Suspect]
     Dosage: TRPL
     Route: 064
     Dates: start: 20090309, end: 20090420
  9. PREDNISOLONE [Suspect]
  10. AZATHIOPRINE [Suspect]
     Dosage: 50 MG;QD;TRPL
     Route: 064
     Dates: start: 20090309
  11. LACTULOSE [Suspect]
     Dosage: TRPL
     Route: 064
     Dates: start: 20090309, end: 20090420

REACTIONS (2)
  - CLEFT LIP AND PALATE [None]
  - MATERNAL DRUGS AFFECTING FOETUS [None]
